FAERS Safety Report 19981987 (Version 38)
Quarter: 2024Q2

REPORT INFORMATION
  Report Type: Report from Study
  Country: PT (occurrence: PT)
  Receive Date: 20211022
  Receipt Date: 20240613
  Transmission Date: 20240716
  Serious: Yes (Disabling)
  Sender: FDA-Public Use
  Company Number: PT-ABBVIE-21K-130-4021588-00

PATIENT
  Sex: Female

DRUGS (31)
  1. CARBIDOPA\LEVODOPA [Suspect]
     Active Substance: CARBIDOPA\LEVODOPA
     Indication: Parkinson^s disease
     Dosage: 20 MG PLUS 5 MG MORNING 8.4ML, MAINT 4.2ML/H, EXTRA 1ML?LAST ADMIN DATE: 2021?FREQUENCY TEXT: MOR...
     Route: 050
     Dates: start: 20210422
  2. CARBIDOPA\LEVODOPA [Suspect]
     Active Substance: CARBIDOPA\LEVODOPA
     Dosage: 20 MG + 5 MG?MORN:17CC;MAINT:9.5CC/H;EXTRA:2.5CC
     Route: 050
     Dates: start: 20240528
  3. CARBIDOPA\LEVODOPA [Suspect]
     Active Substance: CARBIDOPA\LEVODOPA
     Dosage: 20 MG PLUS 5 MG
     Route: 050
     Dates: start: 2021, end: 20211022
  4. CARBIDOPA\LEVODOPA [Suspect]
     Active Substance: CARBIDOPA\LEVODOPA
     Dosage: MD 8.4CC, MD 4.7CC/H, EXTRA DOSE1CC 20 MG PLUS 5 MG?FREQUENCY TEXT: MORN:8.4ML;MAINT:4.2ML/H;EXTR...
     Route: 050
     Dates: start: 20211022, end: 20211223
  5. CARBIDOPA\LEVODOPA [Suspect]
     Active Substance: CARBIDOPA\LEVODOPA
     Dosage: MD 8.4CC, MAINT 5CC/H, EXTRA DOSE 1CC 20 MG PLUS 5 MG?FREQUENCY TEXT: MORN:8.4CC;MAINT:4.7CC/H;EX...
     Route: 050
     Dates: start: 20211223, end: 20220304
  6. CARBIDOPA\LEVODOPA [Suspect]
     Active Substance: CARBIDOPA\LEVODOPA
     Dosage: 20 MG PLUS 5 MG?FREQUENCY TEXT: MORN:8.4ML;MAINT:4.4ML/H;EXTRA:1ML
     Route: 050
     Dates: start: 20220304, end: 20220315
  7. CARBIDOPA\LEVODOPA [Suspect]
     Active Substance: CARBIDOPA\LEVODOPA
     Dosage: 20 MG + 5 MG FREQUENCY TEXT: MORN:15CC;MAINT:6.8CC/H;EXTRA:2.5CC
     Route: 050
     Dates: start: 20240326, end: 20240328
  8. CARBIDOPA\LEVODOPA [Suspect]
     Active Substance: CARBIDOPA\LEVODOPA
     Dosage: 20 MG + 5 MG FREQUENCY TEXT: MORN:15CC;MAINT:7.4CC/H;EXTRA:2.5CC
     Route: 050
     Dates: start: 20240328, end: 20240401
  9. CARBIDOPA\LEVODOPA [Suspect]
     Active Substance: CARBIDOPA\LEVODOPA
     Dosage: 20 MG PLUS 5 MG MORN 10CC, MAINT 5.9CC/H, EXTRA 2CC?FREQUENCY TEXT: MORN:9CC;MAINT:5.5CC/H;EXTRA:2CC
     Route: 050
     Dates: start: 20220315, end: 20220403
  10. CARBIDOPA\LEVODOPA [Suspect]
     Active Substance: CARBIDOPA\LEVODOPA
     Dosage: 20 MG PLUS 5 MG, MORN:12CC;MAINT:6.2CC/H;EXTRA:2CC?FREQUENCY TEXT: MORN:10CC;MAINT:5.9CC/H;EXTRA:2CC
     Route: 050
     Dates: start: 20220403, end: 20220407
  11. CARBIDOPA\LEVODOPA [Suspect]
     Active Substance: CARBIDOPA\LEVODOPA
     Dosage: 20 MG PLUS 5 MG, MORN:12CC;MAINT:6.5CC/H;EXTRA:2CC?FREQUENCY TEXT: MORN:12CC;MAINT:6.5CC/H;EXTRA:2CC
     Route: 050
     Dates: start: 20220407, end: 20220503
  12. CARBIDOPA\LEVODOPA [Suspect]
     Active Substance: CARBIDOPA\LEVODOPA
     Dosage: 20 MG PLUS 5 MG; MORNING DOSE: 15ML; MAINTENANCE DOSE: 6.8ML/H; EXTRA DOSE: 2.5ML?FREQUENCY TEXT:...
     Route: 050
     Dates: start: 20220503, end: 20220520
  13. CARBIDOPA\LEVODOPA [Suspect]
     Active Substance: CARBIDOPA\LEVODOPA
     Dosage: 20 MG AND 5 MG?MORN:17CC;MAINT:7.1CC/H;EXTRA:3CC?FREQUENCY TEXT: MORN:17CC;MAINT:7.1CC/H;EXTRA:3CC
     Route: 050
     Dates: start: 20220520, end: 202206
  14. CARBIDOPA\LEVODOPA [Suspect]
     Active Substance: CARBIDOPA\LEVODOPA
     Dosage: 20 MG AND 5 MG?MORN:17CC;MAINT:7.1CC/H;EXTRA:3CC? FREQUENCY TEXT: MORN:17CC;MAINT:7.1CC/H;EXTRA:3CC
     Route: 050
     Dates: start: 20220817, end: 20220828
  15. CARBIDOPA\LEVODOPA [Suspect]
     Active Substance: CARBIDOPA\LEVODOPA
     Dosage: 20 MG AND 5 MG MORN:17CC;MAINT:7.1CC/H;EXTRA:3CC (PEG) FREQUENCY TEXT: MORN:17CC;MAINT:7.1CC/H;EX...
     Route: 050
     Dates: start: 20220828, end: 20220904
  16. CARBIDOPA\LEVODOPA [Suspect]
     Active Substance: CARBIDOPA\LEVODOPA
     Dosage: 20 MG + 5 MG , MORNING DOSE 17CC, EXTRA DOSE 7.7CC/H AND EXTRA DOSE 2.5CC.
     Route: 050
     Dates: start: 20240401, end: 20240403
  17. CARBIDOPA\LEVODOPA [Suspect]
     Active Substance: CARBIDOPA\LEVODOPA
     Dosage: 20 MG + 5 MG?FREQUENCY TEXT: MORN:17CC;MAINT:9.2CC/H;EXTRA:2.5CC
     Route: 050
     Dates: start: 20240502, end: 20240528
  18. CARBIDOPA\LEVODOPA [Suspect]
     Active Substance: CARBIDOPA\LEVODOPA
     Dosage: 20 MG + 5 MG, FREQUENCY TEXT: MORN:17CC;MAINT:9.5CC/H;EXTRA:2.5CC
     Route: 050
     Dates: start: 20240424, end: 20240502
  19. CARBIDOPA\LEVODOPA [Suspect]
     Active Substance: CARBIDOPA\LEVODOPA
     Dosage: 20 MG + 5 MG
     Route: 050
     Dates: start: 20240424, end: 20240502
  20. CARBIDOPA\LEVODOPA [Suspect]
     Active Substance: CARBIDOPA\LEVODOPA
     Dosage: 20 MG + 5 MG
     Route: 050
     Dates: start: 20240416, end: 20240418
  21. CARBIDOPA\LEVODOPA [Suspect]
     Active Substance: CARBIDOPA\LEVODOPA
     Dosage: 20 MG + 5 MG, LAST ADMIN DATE- APR 2024
     Route: 050
     Dates: start: 20240418, end: 202404
  22. CARBIDOPA\LEVODOPA [Suspect]
     Active Substance: CARBIDOPA\LEVODOPA
     Dosage: 20 MG + 5 MG?FIRST ADMIN DATE- APR 2024
     Route: 050
     Dates: start: 202404, end: 20240424
  23. CLOZAPINE [Concomitant]
     Active Substance: CLOZAPINE
     Indication: Product used for unknown indication
     Dosage: 1 TABLET FREQUENCY TEXT: AT BEDTIME START DATE TEXT: UNKNOWN, STRENGTH 25 MG
     Route: 065
  24. CLOZAPINE [Concomitant]
     Active Substance: CLOZAPINE
     Indication: Product used for unknown indication
     Dosage: 2.5 TABLET, STRENGTH 25 MG
     Route: 065
     Dates: end: 202110
  25. CLOZAPINE [Concomitant]
     Active Substance: CLOZAPINE
     Indication: Product used for unknown indication
     Dosage: 3 TABLETS HALF TABLET BREAKFAST, HALF LUNCH,125 MG NIGHT END DATE: 2022, STRENGTH 25 MG
     Route: 065
     Dates: start: 202110, end: 2022
  26. CLOZAPINE [Concomitant]
     Active Substance: CLOZAPINE
     Indication: Product used for unknown indication
     Dosage: FREQUENCY TEXT: HALF TABLET AT BREAK FAST, HALF TABLET AT LUNCH,125 MG NIGHT FORM STRENGTH: 25 MI...
     Route: 065
     Dates: start: 202205
  27. DITROPAN [Concomitant]
     Active Substance: OXYBUTYNIN CHLORIDE
     Indication: Product used for unknown indication
     Dosage: START DATE TEXT: BEFORE DUODOPA
     Route: 065
  28. ESCITALOPRAM [Concomitant]
     Active Substance: ESCITALOPRAM OXALATE
     Indication: Product used for unknown indication
     Dosage: 1 TABLET FORM STRENGTH: 10 MILLIGRAM FREQUENCY TEXT: IN THE MORNING START DATE TEXT: BEFORE DUODOPA
     Route: 065
  29. SINEMET CR [Concomitant]
     Active Substance: CARBIDOPA\LEVODOPA
     Indication: Product used for unknown indication
     Dosage: FREQUENCY TEXT: AT BEDTIME
     Route: 065
     Dates: start: 2022
  30. SINEMET CR [Concomitant]
     Active Substance: CARBIDOPA\LEVODOPA
     Indication: Product used for unknown indication
     Dosage: FREQUENCY TEXT: AT NIGHT
     Route: 048
     Dates: start: 20211221, end: 2022
  31. SINEMET CR [Concomitant]
     Active Substance: CARBIDOPA\LEVODOPA
     Indication: Product used for unknown indication
     Dosage: 1 TABLET
     Route: 065

REACTIONS (30)
  - Loss of personal independence in daily activities [Unknown]
  - Depressed mood [Recovering/Resolving]
  - Posture abnormal [Recovering/Resolving]
  - Back pain [Recovering/Resolving]
  - Skin abrasion [Recovered/Resolved]
  - Mood swings [Recovering/Resolving]
  - Therapeutic product effect incomplete [Recovered/Resolved]
  - Balance disorder [Recovering/Resolving]
  - Fall [Recovered/Resolved]
  - Fall [Recovered/Resolved]
  - Unevaluable event [Recovering/Resolving]
  - Freezing phenomenon [Not Recovered/Not Resolved]
  - Bradykinesia [Recovering/Resolving]
  - Hallucination [Recovered/Resolved]
  - Device dislocation [Unknown]
  - Parkinsonian gait [Not Recovered/Not Resolved]
  - Fall [Recovered/Resolved]
  - Reduced facial expression [Recovering/Resolving]
  - On and off phenomenon [Recovering/Resolving]
  - Therapeutic product effect incomplete [Not Recovered/Not Resolved]
  - Fall [Recovering/Resolving]
  - Gait disturbance [Recovered/Resolved]
  - Fall [Not Recovered/Not Resolved]
  - Gait disturbance [Recovering/Resolving]
  - Bradykinesia [Recovering/Resolving]
  - Speech disorder [Recovering/Resolving]
  - Freezing phenomenon [Recovering/Resolving]
  - Gait inability [Recovered/Resolved]
  - Incorrect route of product administration [Recovered/Resolved]
  - Memory impairment [Unknown]

NARRATIVE: CASE EVENT DATE: 20210101
